FAERS Safety Report 9847877 (Version 1)
Quarter: 2014Q1

REPORT INFORMATION
  Report Type: Spontaneous
  Country: GB (occurrence: GB)
  Receive Date: 20140128
  Receipt Date: 20140128
  Transmission Date: 20141002
  Serious: Yes (Life-Threatening, Hospitalization)
  Sender: FDA-Public Use
  Company Number: GB-ACCORD-021438

PATIENT
  Age: 54 Year
  Sex: Female
  Weight: 71.5 kg

DRUGS (5)
  1. METOCLOPRAMIDE [Concomitant]
     Dosage: 10-20 MG
     Dates: start: 20130822, end: 20131206
  2. HERCEPTIN [Suspect]
     Indication: BREAST CANCER METASTATIC
     Dosage: 4TH CYCLE
     Route: 042
     Dates: start: 20130822
  3. PERJETA [Suspect]
     Indication: BREAST CANCER METASTATIC
     Dosage: 4TH CYCLE
     Route: 042
     Dates: start: 20130822
  4. DOCETAXEL [Suspect]
     Indication: BREAST CANCER METASTATIC
     Dosage: 4TH CYCLE
     Route: 042
     Dates: start: 20130822, end: 20131205
  5. DEXAMETHASONE [Concomitant]
     Indication: ANTIALLERGIC THERAPY
     Dates: start: 20130822, end: 20131206

REACTIONS (2)
  - Embolism venous [Unknown]
  - Pulmonary embolism [Recovered/Resolved]
